FAERS Safety Report 12779419 (Version 1)
Quarter: 2016Q3

REPORT INFORMATION
  Report Type: Report from Study
  Country: US (occurrence: US)
  Receive Date: 20160926
  Receipt Date: 20160926
  Transmission Date: 20161109
  Serious: Yes (Hospitalization, Other)
  Sender: FDA-Public Use
  Company Number: US-ROCHE-1083431

PATIENT
  Age: 77 Year
  Sex: Female
  Weight: 65.2 kg

DRUGS (25)
  1. BEVACIZUMAB [Suspect]
     Active Substance: BEVACIZUMAB
     Dosage: COURSE ID 13
     Route: 042
     Dates: start: 20120315
  2. BEVACIZUMAB [Suspect]
     Active Substance: BEVACIZUMAB
     Indication: PAPILLARY SEROUS ENDOMETRIAL CARCINOMA
     Dosage: OCURSE ID 1?TOTAL DOSE:960 MG, LAST DOSE PRIOR TO SAE: 17/MAY/2012
     Route: 042
     Dates: start: 20110610
  3. IXABEPILONE [Suspect]
     Active Substance: IXABEPILONE
     Dosage: COURSE ID 3
     Route: 042
     Dates: start: 20110729
  4. IXABEPILONE [Suspect]
     Active Substance: IXABEPILONE
     Dosage: COURSE ID 4
     Route: 042
     Dates: start: 20110818
  5. BEVACIZUMAB [Suspect]
     Active Substance: BEVACIZUMAB
     Dosage: COURSE ID 3
     Route: 042
     Dates: start: 20110729
  6. BEVACIZUMAB [Suspect]
     Active Substance: BEVACIZUMAB
     Dosage: COURSE ID 5
     Route: 042
     Dates: start: 20110922
  7. IXABEPILONE [Suspect]
     Active Substance: IXABEPILONE
     Dosage: COURSE ID 2
     Route: 042
     Dates: start: 20110701
  8. IXABEPILONE [Suspect]
     Active Substance: IXABEPILONE
     Dosage: COURSE ID 5
     Route: 042
     Dates: start: 20110922
  9. BEVACIZUMAB [Suspect]
     Active Substance: BEVACIZUMAB
     Dosage: COURSE ID 9
     Route: 042
     Dates: start: 20121222
  10. BEVACIZUMAB [Suspect]
     Active Substance: BEVACIZUMAB
     Dosage: COURSE ID 18
     Route: 042
     Dates: start: 20120712
  11. IXABEPILONE [Suspect]
     Active Substance: IXABEPILONE
     Indication: PAPILLARY SEROUS ENDOMETRIAL CARCINOMA
     Dosage: DOSE: 52 MG, COURSE ID 1
     Route: 042
     Dates: start: 20110606
  12. IXABEPILONE [Suspect]
     Active Substance: IXABEPILONE
     Dosage: COURSE ID 6
     Route: 042
     Dates: start: 20111013
  13. BEVACIZUMAB [Suspect]
     Active Substance: BEVACIZUMAB
     Dosage: COURSE ID 8
     Route: 042
     Dates: start: 20121201
  14. BEVACIZUMAB [Suspect]
     Active Substance: BEVACIZUMAB
     Dosage: COURSE ID 16
     Route: 042
     Dates: start: 20120517
  15. BEVACIZUMAB [Suspect]
     Active Substance: BEVACIZUMAB
     Dosage: COURSE ID 2
     Route: 042
     Dates: start: 20110701
  16. BEVACIZUMAB [Suspect]
     Active Substance: BEVACIZUMAB
     Dosage: COURSE ID 6
     Route: 042
     Dates: start: 20111013
  17. BEVACIZUMAB [Suspect]
     Active Substance: BEVACIZUMAB
     Dosage: COURSE ID 17
     Route: 042
     Dates: start: 20120621
  18. CARBOPLATIN. [Suspect]
     Active Substance: CARBOPLATIN
     Indication: PAPILLARY SEROUS ENDOMETRIAL CARCINOMA
     Route: 042
  19. BEVACIZUMAB [Suspect]
     Active Substance: BEVACIZUMAB
     Dosage: COURSE ID 4
     Route: 042
     Dates: start: 20110818
  20. BEVACIZUMAB [Suspect]
     Active Substance: BEVACIZUMAB
     Dosage: COURSE ID 10
     Route: 042
     Dates: start: 20120112
  21. BEVACIZUMAB [Suspect]
     Active Substance: BEVACIZUMAB
     Dosage: COURSE ID 11
     Route: 042
     Dates: start: 20120202
  22. BEVACIZUMAB [Suspect]
     Active Substance: BEVACIZUMAB
     Dosage: COURSE ID 15
     Route: 042
     Dates: start: 20120426
  23. BEVACIZUMAB [Suspect]
     Active Substance: BEVACIZUMAB
     Dosage: COURSE ID 7
     Route: 042
     Dates: start: 20111103
  24. BEVACIZUMAB [Suspect]
     Active Substance: BEVACIZUMAB
     Dosage: COURSE ID 12
     Route: 042
     Dates: start: 20120223
  25. BEVACIZUMAB [Suspect]
     Active Substance: BEVACIZUMAB
     Dosage: COURSE ID 14
     Route: 042
     Dates: start: 20120405

REACTIONS (5)
  - Supraventricular tachycardia [Recovered/Resolved]
  - Neutrophil count decreased [Unknown]
  - Chest pain [Recovered/Resolved]
  - White blood cell count decreased [Unknown]
  - Fatigue [Unknown]

NARRATIVE: CASE EVENT DATE: 20120523
